FAERS Safety Report 13060475 (Version 2)
Quarter: 2024Q3

REPORT INFORMATION
  Report Type: Spontaneous
  Country: US (occurrence: US)
  Receive Date: 20161224
  Receipt Date: 20240921
  Transmission Date: 20241017
  Serious: Yes (Life-Threatening, Other)
  Sender: ACCORD
  Company Number: US-MLMSERVICE-20161207-0527858-1

PATIENT
  Age: 25 Year
  Sex: Female

DRUGS (3)
  1. MYCOPHENOLIC ACID [Suspect]
     Active Substance: MYCOPHENOLIC ACID
     Indication: Liver transplant
  2. TACROLIMUS [Suspect]
     Active Substance: TACROLIMUS
     Indication: Liver transplant
  3. PREDNISONE [Suspect]
     Active Substance: PREDNISONE
     Indication: Liver transplant
     Dosage: DOSE WAS INCREASED AFTER ACUTE ON CHRONIC REJECTION, RECURRENT CIRRHOSIS

REACTIONS (3)
  - Respiratory failure [Unknown]
  - Bronchopulmonary aspergillosis [Unknown]
  - Diffuse alveolar damage [Unknown]
